FAERS Safety Report 9360711 (Version 1)
Quarter: 2013Q2

REPORT INFORMATION
  Report Type: Report from Study
  Country: GB (occurrence: GB)
  Receive Date: 20130621
  Receipt Date: 20130621
  Transmission Date: 20140414
  Serious: Yes (Other)
  Sender: FDA-Public Use
  Company Number: GB-VERTEX PHARMACEUTICALS INC-2013-007277

PATIENT
  Sex: Male

DRUGS (4)
  1. VX-950 (TELAPREVIR) [Suspect]
     Indication: HEPATITIS C
  2. RIBAVIRIN [Suspect]
     Indication: HEPATITIS C
     Dosage: DOSAGE FORM: TABLET
     Route: 048
  3. RIBAVIRIN [Suspect]
     Dosage: DOSAGE FORM: TABLET
     Route: 048
     Dates: start: 20130424, end: 20130529
  4. PEGINTERFERON ALFA [Concomitant]
     Indication: HEPATITIS C

REACTIONS (2)
  - Blood count abnormal [Unknown]
  - Fatigue [Not Recovered/Not Resolved]
